FAERS Safety Report 7947271 (Version 2)
Quarter: 2012Q4

REPORT INFORMATION
  Report Type: 
  Country: US (occurrence: US)
  Receive Date: 20110517
  Receipt Date: 20121022
  Transmission Date: 20130627
  Serious: No
  Sender: FDA-Public Use
  Company Number: US-B.I. PHARMACEUTICALS,INC./RIDGEFIELD-2011-BP-12147BP

PATIENT
  Sex: Female

DRUGS (1)
  1. SPIRIVA HANDIHALER [Suspect]

REACTIONS (1)
  - Drug ineffective [Unknown]
